FAERS Safety Report 16050581 (Version 1)
Quarter: 2019Q1

REPORT INFORMATION
  Report Type: Spontaneous
  Country: TG (occurrence: TG)
  Receive Date: 20190308
  Receipt Date: 20190308
  Transmission Date: 20190418
  Serious: Yes (Hospitalization, Other)
  Sender: FDA-Public Use
  Company Number: TG-ACCORD-111527

PATIENT
  Age: 92 Year
  Sex: Male

DRUGS (14)
  1. MINOFIL [Concomitant]
     Dosage: 1 VIAL IN THE MORNING
  2. LAROXYL [Suspect]
     Active Substance: AMITRIPTYLINE HYDROCHLORIDE
     Indication: PRODUCT USED FOR UNKNOWN INDICATION
     Dosage: 25 MG MORNING AND EVENING FOR MORE THAN 20 YEARS
  3. STABLON [Suspect]
     Active Substance: TIANEPTINE
     Indication: PRODUCT USED FOR UNKNOWN INDICATION
  4. ADENURIC [Concomitant]
     Active Substance: FEBUXOSTAT
     Indication: GOUT
     Dosage: 80 MG IN THE MORNING
  5. SERENOA REPENS [Concomitant]
     Active Substance: SERENOA REPENS WHOLE
     Dosage: 160 MG MORNING AND EVENING
  6. FORADIL [Concomitant]
     Active Substance: FORMOTEROL FUMARATE
     Dosage: 01 PUFF MORNING AND EVENING
  7. PARACETAMOL [Concomitant]
     Active Substance: ACETAMINOPHEN
     Indication: PAIN
     Dosage: PARACETAMOL 1G X3/DAY
  8. TRIVASTAL LP [Concomitant]
     Active Substance: PIRIBEDIL
     Indication: TREMOR
     Dosage: 50 MG/J DAY
  9. ALFUZOSIN [Suspect]
     Active Substance: ALFUZOSIN
     Indication: BENIGN PROSTATIC HYPERPLASIA
  10. RENUTRYL [Concomitant]
     Indication: MALNUTRITION
  11. BISOPROLOL [Suspect]
     Active Substance: BISOPROLOL
     Indication: ATRIAL FIBRILLATION
  12. ALPRAZOLAM. [Concomitant]
     Active Substance: ALPRAZOLAM
     Indication: INSOMNIA
     Dosage: ALPRAZOLAM 0.25 MG (1/2 TABLET) IN THE EVENING
  13. LYSINE [Concomitant]
     Active Substance: LYSINE
     Indication: THROMBOSIS PROPHYLAXIS
  14. FUROSEMIDE. [Suspect]
     Active Substance: FUROSEMIDE
     Indication: OEDEMA PERIPHERAL
     Dosage: 40 MG IN THE MORNING

REACTIONS (12)
  - Hyperkalaemia [Recovering/Resolving]
  - Urinary retention [Recovering/Resolving]
  - Hyperglycaemia [Unknown]
  - Blood cholesterol increased [Recovered/Resolved]
  - Hypochloraemia [Unknown]
  - Immune reconstitution inflammatory syndrome [Recovering/Resolving]
  - End stage renal disease [Recovering/Resolving]
  - Faecaloma [Recovering/Resolving]
  - Hyperfibrinogenaemia [Recovered/Resolved]
  - Hypotension [Unknown]
  - Iatrogenic injury [Recovering/Resolving]
  - Hypotonia [Recovering/Resolving]
